FAERS Safety Report 22102610 (Version 1)
Quarter: 2023Q1

REPORT INFORMATION
  Report Type: Spontaneous
  Country: AT (occurrence: AT)
  Receive Date: 20230316
  Receipt Date: 20230316
  Transmission Date: 20230417
  Serious: Yes (Hospitalization, Other)
  Sender: FDA-Public Use
  Company Number: None

PATIENT
  Age: 64 Year
  Sex: Female
  Weight: 80.4 kg

DRUGS (36)
  1. DOCETAXEL [Suspect]
     Active Substance: DOCETAXEL
     Indication: Breast cancer metastatic
     Route: 042
     Dates: start: 20170224, end: 20170317
  2. CAPECITABINE [Suspect]
     Active Substance: CAPECITABINE
     Indication: Breast cancer
     Route: 048
     Dates: start: 20191002, end: 20200107
  3. FULVESTRANT [Suspect]
     Active Substance: FULVESTRANT
     Indication: Breast cancer
     Route: 058
     Dates: start: 20171002, end: 20171115
  4. LAPATINIB [Suspect]
     Active Substance: LAPATINIB
     Indication: Breast cancer
     Route: 048
  5. PERTUZUMAB [Suspect]
     Active Substance: PERTUZUMAB
     Indication: Breast cancer metastatic
     Route: 042
  6. ADO-TRASTUZUMAB EMTANSINE [Suspect]
     Active Substance: ADO-TRASTUZUMAB EMTANSINE
     Indication: Breast cancer metastatic
     Dosage: 270 MG
     Route: 042
  7. TRASTUZUMAB [Suspect]
     Active Substance: TRASTUZUMAB
     Indication: Breast cancer metastatic
     Route: 042
     Dates: start: 20170224, end: 20170224
  8. VINORELBINE [Suspect]
     Active Substance: VINORELBINE TARTRATE
     Indication: Breast cancer metastatic
     Dosage: 45 MG
     Route: 042
     Dates: start: 20200422
  9. ACETAMINOPHEN [Concomitant]
     Active Substance: ACETAMINOPHEN
     Indication: Product used for unknown indication
     Dates: start: 20200506
  10. XGEVA [Concomitant]
     Active Substance: DENOSUMAB
     Indication: Product used for unknown indication
     Route: 065
     Dates: start: 20170202
  11. KALIORAL [Concomitant]
     Indication: Product used for unknown indication
     Route: 065
     Dates: start: 20200427, end: 20200428
  12. LEUKICHTAN [Concomitant]
     Indication: Product used for unknown indication
     Route: 065
     Dates: start: 20200430, end: 20200515
  13. NOVALGIN [Concomitant]
     Indication: Product used for unknown indication
     Route: 065
     Dates: start: 20170329, end: 20180807
  14. NERIFORTE [Concomitant]
     Indication: Skin fissures
     Route: 065
     Dates: start: 20200430, end: 20200515
  15. OLIVE OIL [Concomitant]
     Active Substance: OLIVE OIL
     Indication: Paronychia
     Route: 065
     Dates: start: 20191002, end: 20200512
  16. OLEOVIT [Concomitant]
     Indication: Product used for unknown indication
     Route: 065
     Dates: start: 20170329
  17. PANTOPRAZOLE [Concomitant]
     Active Substance: PANTOPRAZOLE
     Indication: Product used for unknown indication
     Route: 065
     Dates: start: 20170722, end: 20180327
  18. PANTOPRAZOLE [Concomitant]
     Active Substance: PANTOPRAZOLE
     Route: 065
     Dates: start: 20200506, end: 20200519
  19. PREGABALIN [Concomitant]
     Active Substance: PREGABALIN
     Indication: Product used for unknown indication
     Route: 065
     Dates: start: 20190821
  20. PASPERTIN [Concomitant]
     Indication: Product used for unknown indication
     Route: 065
     Dates: start: 20200506
  21. LEVOFLOXACIN [Concomitant]
     Active Substance: LEVOFLOXACIN
     Indication: Product used for unknown indication
     Route: 065
     Dates: start: 20200506, end: 20200512
  22. TAZOBACTAM [Concomitant]
     Active Substance: TAZOBACTAM
     Indication: Streptococcal sepsis
     Route: 065
     Dates: start: 20200423, end: 20200504
  23. ZOFRAN [Concomitant]
     Active Substance: ONDANSETRON HYDROCHLORIDE
     Indication: Product used for unknown indication
     Route: 065
     Dates: start: 20200506
  24. BETAISODONA [Concomitant]
     Active Substance: POVIDONE-IODINE
     Indication: Skin fissures
     Route: 065
     Dates: start: 20200430, end: 20200515
  25. VITAMINS WITH MINERALS [Concomitant]
     Active Substance: MINERALS\VITAMINS
     Indication: Product used for unknown indication
     Route: 065
     Dates: start: 20170203
  26. EMEND [Concomitant]
     Active Substance: APREPITANT
     Indication: Product used for unknown indication
     Route: 065
     Dates: start: 20200428, end: 20200430
  27. EUTHYROX [Concomitant]
     Active Substance: LEVOTHYROXINE SODIUM
     Indication: Product used for unknown indication
     Route: 065
  28. FENTANYL [Concomitant]
     Active Substance: FENTANYL
     Indication: Product used for unknown indication
     Route: 065
     Dates: start: 20200515
  29. DEXAMETHASONE [Concomitant]
     Active Substance: DEXAMETHASONE
     Indication: Brain oedema
     Route: 065
     Dates: start: 20200422, end: 20200505
  30. DEXAMETHASONE [Concomitant]
     Active Substance: DEXAMETHASONE
     Route: 065
     Dates: start: 20171007, end: 20171008
  31. DEXAMETHASONE [Concomitant]
     Active Substance: DEXAMETHASONE
     Route: 065
     Dates: start: 20171004, end: 20171006
  32. FUROSEMIDE [Concomitant]
     Active Substance: FUROSEMIDE
     Indication: Product used for unknown indication
     Route: 065
     Dates: start: 20170810, end: 20171213
  33. FUROSEMIDE [Concomitant]
     Active Substance: FUROSEMIDE
     Route: 065
     Dates: start: 20170810
  34. POTASSIUM CHLORIDE [Concomitant]
     Active Substance: POTASSIUM CHLORIDE
     Indication: Product used for unknown indication
     Route: 065
     Dates: start: 20170429
  35. EDOXABAN TOSYLATE [Concomitant]
     Active Substance: EDOXABAN TOSYLATE
     Indication: Product used for unknown indication
     Route: 065
     Dates: start: 20191120, end: 20200608
  36. LOVENOX [Concomitant]
     Active Substance: ENOXAPARIN SODIUM
     Indication: Product used for unknown indication
     Route: 065
     Dates: start: 20170224, end: 20171130

REACTIONS (9)
  - Brain oedema [Not Recovered/Not Resolved]
  - Pseudomonal sepsis [Recovered/Resolved]
  - Metastases to central nervous system [Not Recovered/Not Resolved]
  - Metastases to lymph nodes [Not Recovered/Not Resolved]
  - Sepsis [Recovered/Resolved]
  - Streptococcal sepsis [Recovered/Resolved]
  - Vascular device infection [Recovered/Resolved]
  - Pleural effusion [Not Recovered/Not Resolved]
  - Fatigue [Not Recovered/Not Resolved]

NARRATIVE: CASE EVENT DATE: 20200415
